FAERS Safety Report 5140693-7 (Version None)
Quarter: 2006Q4

REPORT INFORMATION
  Report Type: 
  Country: None (occurrence: None)
  Receive Date: 20061025
  Receipt Date: 20061012
  Transmission Date: 20070319
  Serious: Yes (Hospitalization, Other)
  Sender: FDA-Public Use
  Company Number: 2006075284

PATIENT
  Age: 65 Year
  Sex: Female

DRUGS (3)
  1. NEURONTIN [Suspect]
     Indication: TRIGEMINAL NEURALGIA
     Dosage: 1800 MG (1 D), ORAL
     Route: 048
     Dates: start: 20060601
  2. CARBAMAZEPINE [Suspect]
     Dates: start: 20030101
  3. GABAPENTIN [Suspect]
     Dates: start: 20030101

REACTIONS (11)
  - BLOOD ALKALINE PHOSPHATASE INCREASED [None]
  - BLOOD GLUCOSE INCREASED [None]
  - DIZZINESS [None]
  - DRUG INTOLERANCE [None]
  - DRUG TOXICITY [None]
  - ERYTHROPENIA [None]
  - GASTROINTESTINAL INFECTION [None]
  - GENERAL PHYSICAL HEALTH DETERIORATION [None]
  - HYPERVENTILATION [None]
  - LEUKOPENIA [None]
  - VOMITING [None]
